FAERS Safety Report 5961527-4 (Version None)
Quarter: 2008Q4

REPORT INFORMATION
  Report Type: 
  Country: None (occurrence: None)
  Receive Date: 20081121
  Receipt Date: 20081117
  Transmission Date: 20090506
  Serious: Yes (Death, Hospitalization)
  Sender: FDA-Public Use
  Company Number: A0745191A

PATIENT
  Age: 74 Year
  Sex: Male

DRUGS (7)
  1. REQUIP [Suspect]
     Indication: PARKINSON'S DISEASE
     Dosage: 3MG FOUR TIMES PER DAY
     Route: 048
  2. SINEMET CR [Concomitant]
  3. STALEVO 100 [Concomitant]
  4. CELEBREX [Concomitant]
  5. TRIAMTERENE [Concomitant]
  6. MAG-OX [Concomitant]
  7. PERMAX [Concomitant]
     Indication: PARKINSON'S DISEASE

REACTIONS (11)
  - BALANCE DISORDER [None]
  - DRUG INEFFECTIVE [None]
  - DYSSTASIA [None]
  - FALL [None]
  - HYPERVENTILATION [None]
  - ILL-DEFINED DISORDER [None]
  - JOINT DISLOCATION [None]
  - MYOCARDIAL INFARCTION [None]
  - ROTATOR CUFF SYNDROME [None]
  - STARING [None]
  - WHEELCHAIR USER [None]
